FAERS Safety Report 16748877 (Version 2)
Quarter: 2019Q3

REPORT INFORMATION
  Report Type: Report from Study
  Country: None (occurrence: CO)
  Receive Date: 20190828
  Receipt Date: 20190926
  Transmission Date: 20191005
  Serious: Yes (Other)
  Sender: FDA-Public Use
  Company Number: CO-ABBVIE-19K-036-2903857-00

PATIENT
  Sex: Female
  Weight: 67 kg

DRUGS (2)
  1. HUMIRA [Suspect]
     Active Substance: ADALIMUMAB
     Indication: RHEUMATOID ARTHRITIS
     Route: 058
     Dates: start: 20130313
  2. METHOTREXATE. [Concomitant]
     Active Substance: METHOTREXATE
     Indication: PRODUCT USED FOR UNKNOWN INDICATION
     Route: 048

REACTIONS (3)
  - Gait disturbance [Recovering/Resolving]
  - Pain in extremity [Not Recovered/Not Resolved]
  - Morton^s neuralgia [Recovering/Resolving]

NARRATIVE: CASE EVENT DATE: 2017
